FAERS Safety Report 10752997 (Version 1)
Quarter: 2015Q1

REPORT INFORMATION
  Report Type: Spontaneous
  Country: US (occurrence: US)
  Receive Date: 20150130
  Receipt Date: 20150130
  Transmission Date: 20150721
  Serious: Yes (Other)
  Sender: FDA-Public Use
  Company Number: US-PFIZER INC-2015032494

PATIENT
  Age: 66 Year
  Sex: Female
  Weight: 83 kg

DRUGS (3)
  1. MEDROL [Concomitant]
     Active Substance: METHYLPREDNISOLONE
     Indication: SINUSITIS
  2. RELPAX [Suspect]
     Active Substance: ELETRIPTAN HYDROBROMIDE
     Indication: MIGRAINE
     Dosage: 40 MG, 1X/DAY
     Route: 048
     Dates: start: 20150121
  3. BIAXIN [Concomitant]
     Active Substance: CLARITHROMYCIN
     Indication: SINUSITIS

REACTIONS (3)
  - Sinusitis [Unknown]
  - Drug ineffective [Not Recovered/Not Resolved]
  - Sinus headache [Not Recovered/Not Resolved]
